FAERS Safety Report 25167078 (Version 1)
Quarter: 2025Q2

REPORT INFORMATION
  Report Type: Spontaneous
  Country: FR (occurrence: FR)
  Receive Date: 20250407
  Receipt Date: 20250407
  Transmission Date: 20250717
  Serious: Yes (Hospitalization, Other)
  Sender: NOVARTIS
  Company Number: FR-GLAXOSMITHKLINE-FR2015GSK117191

PATIENT
  Age: 29 Year
  Sex: Male
  Weight: 119 kg

DRUGS (4)
  1. TAFINLAR [Suspect]
     Active Substance: DABRAFENIB MESYLATE
     Indication: Metastatic malignant melanoma
     Dosage: 2 UNK, BID
     Route: 048
     Dates: start: 20140725, end: 20150521
  2. TAFINLAR [Suspect]
     Active Substance: DABRAFENIB MESYLATE
     Route: 065
     Dates: start: 20150427
  3. PEMBROLIZUMAB [Suspect]
     Active Substance: PEMBROLIZUMAB
     Indication: Metastatic malignant melanoma
     Route: 065
     Dates: start: 20150112
  4. IPILIMUMAB [Suspect]
     Active Substance: IPILIMUMAB
     Indication: Metastatic malignant melanoma
     Route: 065
     Dates: start: 201412, end: 201412

REACTIONS (9)
  - Seizure [Recovered/Resolved]
  - Uveitis [Recovered/Resolved]
  - Asthenia [Recovering/Resolving]
  - Eczema nummular [Recovering/Resolving]
  - Rash papular [Recovered/Resolved]
  - Microcytosis [Not Recovered/Not Resolved]
  - Skin exfoliation [Unknown]
  - Itching scar [Unknown]
  - Off label use [Unknown]

NARRATIVE: CASE EVENT DATE: 20141201
